FAERS Safety Report 4334635-1 (Version None)
Quarter: 2004Q2

REPORT INFORMATION
  Report Type: 
  Country: None (occurrence: None)
  Receive Date: 20040408
  Receipt Date: 20040329
  Transmission Date: 20050107
  Serious: Yes (Hospitalization)
  Sender: FDA-Public Use
  Company Number: PHFR2004GB01606

PATIENT
  Age: 79 Year
  Sex: Male
  Weight: 100 kg

DRUGS (7)
  1. DICLOFENAC SODIUM [Suspect]
     Indication: RHEUMATOID ARTHRITIS
     Dosage: 50 MG, BID
     Route: 048
     Dates: end: 20040309
  2. METHOTREXATE [Concomitant]
     Indication: RHEUMATOID ARTHRITIS
     Dosage: 17.5 MG, QW
     Route: 048
  3. PREDNISOLONE [Concomitant]
     Indication: RHEUMATOID ARTHRITIS
     Dosage: 5 MG, QD
     Route: 048
  4. MISOPROSTOL [Concomitant]
     Indication: PROPHYLAXIS AGAINST GASTROINTESTINAL ULCER
     Dosage: 200 MG, QD
     Route: 048
  5. DIHYDROCODEINE [Concomitant]
     Indication: RHEUMATOID ARTHRITIS
     Dosage: 60 MG, QD
     Route: 048
  6. GEMCITABINE [Concomitant]
     Route: 065
  7. CARBOPLATIN [Concomitant]
     Dosage: UNK, UNK
     Route: 065

REACTIONS (6)
  - DUODENAL ULCER [None]
  - GASTRIC ULCER HAEMORRHAGE [None]
  - GASTRITIS [None]
  - MALAISE [None]
  - RECTAL HAEMORRHAGE [None]
  - REFLUX OESOPHAGITIS [None]
